FAERS Safety Report 9304965 (Version 1)
Quarter: 2013Q2

REPORT INFORMATION
  Report Type: Spontaneous
  Country: DE (occurrence: None)
  Receive Date: 20130521
  Receipt Date: 20130521
  Transmission Date: 20140414
  Serious: Yes (Life-Threatening)
  Sender: FDA-Public Use
  Company Number: GER/GER/13/0029587

PATIENT
  Age: 51 Year
  Sex: Female
  Weight: 50 kg

DRUGS (2)
  1. QUETIAPINE (QUETIAPINE) (QUETIAPINE) [Suspect]
     Indication: PRODUCT USED FOR UNKNOWN INDICATION
     Dosage: 15000 MG, 1 IN 1 ONCE, ORAL
     Route: 048
     Dates: start: 20130213, end: 20130213
  2. TAZOBAC (PIP/TAZO) [Concomitant]

REACTIONS (4)
  - Suicide attempt [None]
  - Intentional overdose [None]
  - Pneumonia [None]
  - Leukopenia [None]
